FAERS Safety Report 23175406 (Version 1)
Quarter: 2023Q4

REPORT INFORMATION
  Report Type: Spontaneous
  Country: DE (occurrence: DE)
  Receive Date: 20231113
  Receipt Date: 20231113
  Transmission Date: 20240110
  Serious: Yes (Other)
  Sender: FDA-Public Use
  Company Number: DE-EMBRYOTOX-202300707

PATIENT
  Sex: Female
  Weight: 84 kg

DRUGS (4)
  1. QUETIAPINE [Suspect]
     Active Substance: QUETIAPINE
     Indication: Bipolar disorder
     Dosage: 300 MILLIGRAM, ONCE A DAY (FIRST TRIMESTER, 0. - 39.4. GESTATIONAL WEEK)
     Route: 048
     Dates: start: 20220801, end: 20230505
  2. PREDNISOLONE [Suspect]
     Active Substance: PREDNISOLONE
     Indication: Crohn^s disease
     Dosage: 10 MILLIGRAM, ONCE A DAY (FIRST TRIMESTER, 0. - 39.4 GESTATIONAL WEEK)
     Route: 048
     Dates: start: 20220801, end: 20230505
  3. BOOSTRIX POLIO [Concomitant]
     Active Substance: DIPHTHERIA AND TETANUS TOXOIDS AND ACELLULAR PERTUSSIS ADSORBED AND INACTIVATED POLIOVIRUS VACCINE
     Indication: Immunisation
     Dosage: UNK. THIRD TRIMESTER (30. - 30. GESTATIONAL WEEK)
     Route: 030
     Dates: start: 20230227, end: 20230227
  4. INFLUVAC TETRA [Concomitant]
     Active Substance: INFLUENZA VIRUS VACCINE QUADRIVALENT TYPE A+B
     Indication: Immunisation
     Dosage: UNK (AT GW 18  )
     Route: 065

REACTIONS (2)
  - Gestational diabetes [Recovered/Resolved]
  - Exposure during pregnancy [Unknown]
